FAERS Safety Report 20005935 (Version 3)
Quarter: 2021Q4

REPORT INFORMATION
  Report Type: Spontaneous
  Country: JP (occurrence: JP)
  Receive Date: 20211028
  Receipt Date: 20211125
  Transmission Date: 20220304
  Serious: Yes (Hospitalization)
  Sender: FDA-Public Use
  Company Number: JP-NBI-J202120502BIPI

PATIENT
  Age: 80 Year
  Sex: Male

DRUGS (4)
  1. DIPYRIDAMOLE [Suspect]
     Active Substance: DIPYRIDAMOLE
     Indication: Proteinuria
     Route: 048
  2. CEPHARANTHINE [Concomitant]
     Active Substance: CEPHARANTHINE
     Indication: Product used for unknown indication
     Route: 065
  3. AMLODIPINE BESYLATE [Concomitant]
     Active Substance: AMLODIPINE BESYLATE
     Indication: Product used for unknown indication
     Route: 065
  4. ADENINE [Concomitant]
     Active Substance: ADENINE
     Indication: Product used for unknown indication
     Route: 065

REACTIONS (1)
  - Venous thrombosis [Recovered/Resolved]

NARRATIVE: CASE EVENT DATE: 20211013
